FAERS Safety Report 6020630-3 (Version None)
Quarter: 2008Q4

REPORT INFORMATION
  Report Type: 
  Country: None (occurrence: None)
  Receive Date: 20081224
  Receipt Date: 20081224
  Transmission Date: 20090506
  Serious: Yes (Life-Threatening, Disabling, Other)
  Sender: FDA-Public Use
  Company Number: None

PATIENT
  Sex: Female
  Weight: 86.1834 kg

DRUGS (1)
  1. ISOSORBIDE MONONITRATE [Suspect]
     Indication: ARTERIAL OCCLUSIVE DISEASE
     Dosage: 30 MG 1 PER DAY
     Dates: start: 20081001, end: 20081126

REACTIONS (2)
  - ADVERSE DRUG REACTION [None]
  - PRODUCT QUALITY ISSUE [None]
